FAERS Safety Report 5514890-2 (Version None)
Quarter: 2007Q4

REPORT INFORMATION
  Report Type: 
  Country: None (occurrence: None)
  Receive Date: 20071113
  Receipt Date: 20060921
  Transmission Date: 20080405
  Serious: No
  Sender: FDA-Public Use
  Company Number: A0620971A

PATIENT
  Age: 69 Year
  Sex: Female

DRUGS (1)
  1. COREG [Suspect]
     Indication: HYPERTENSION
     Dosage: 25MG TWICE PER DAY
     Route: 048
     Dates: start: 20050101

REACTIONS (1)
  - DYSPNOEA [None]
